FAERS Safety Report 6193497-0 (Version None)
Quarter: 2009Q2

REPORT INFORMATION
  Report Type: 
  Country: None (occurrence: None)
  Receive Date: 20090518
  Receipt Date: 20090512
  Transmission Date: 20091009
  Serious: Yes (Hospitalization)
  Sender: FDA-Public Use
  Company Number: US-BIOGENIDEC-2009BI009095

PATIENT
  Age: 61 Year
  Sex: Male

DRUGS (15)
  1. TYSABRI [Suspect]
     Indication: MULTIPLE SCLEROSIS
     Route: 042
     Dates: start: 20081215
  2. LEXAPRO [Concomitant]
     Indication: DEPRESSION
  3. LEXAPRO [Concomitant]
  4. PROVIGIL [Concomitant]
  5. VESICARE [Concomitant]
  6. ATACAND [Concomitant]
  7. CIALIS [Concomitant]
  8. LEVITRA [Concomitant]
  9. SIMVASTATIN [Concomitant]
     Indication: HYPERLIPIDAEMIA
  10. CENTRUM SILVER [Concomitant]
  11. CLONAZEPAM [Concomitant]
     Route: 048
  12. ARICEPT [Concomitant]
     Indication: COGNITIVE DISORDER
     Route: 048
  13. BUSPAR [Concomitant]
     Indication: ANXIETY
  14. BUSPAR [Concomitant]
     Dates: start: 20090301
  15. ERGOCALCIFEROL [Concomitant]
     Indication: VITAMIN D DEFICIENCY

REACTIONS (3)
  - CAROTID ARTERY DISEASE [None]
  - COGNITIVE DISORDER [None]
  - THALAMIC INFARCTION [None]
